FAERS Safety Report 7593099-5 (Version None)
Quarter: 2011Q3

REPORT INFORMATION
  Report Type: 
  Country: None (occurrence: None)
  Receive Date: 20110706
  Receipt Date: 20110627
  Transmission Date: 20111222
  Serious: Yes (Other)
  Sender: FDA-Public Use
  Company Number: DE-ROCHE-787274

PATIENT
  Age: 39 Year
  Sex: Female

DRUGS (2)
  1. XELODA [Suspect]
     Route: 048
     Dates: end: 20110629
  2. XELODA [Suspect]
     Indication: BREAST CANCER
     Route: 048
     Dates: start: 20110620

REACTIONS (2)
  - PAIN [None]
  - MOUTH HAEMORRHAGE [None]
